FAERS Safety Report 7527724-1 (Version None)
Quarter: 2011Q2

REPORT INFORMATION
  Report Type: 
  Country: None (occurrence: None)
  Receive Date: 20110527
  Receipt Date: 20110516
  Transmission Date: 20111010
  Serious: Yes (Death)
  Sender: FDA-Public Use
  Company Number: JP-2011-10808

PATIENT
  Age: 36 Year
  Sex: Male
  Weight: 64 kg

DRUGS (13)
  1. ALDACTONE [Concomitant]
  2. SAMSCA [Suspect]
     Indication: CARDIAC FAILURE CONGESTIVE
     Dosage: 7.5 MG MILLIGRAM(S), QD, ORAL
     Route: 048
     Dates: start: 20110322, end: 20110323
  3. ALLOPURINOL [Concomitant]
  4. FAMOTIDINE [Concomitant]
  5. DOBUTAMINE HCL [Concomitant]
  6. ENALAPRIL MALEATE [Concomitant]
  7. WARFARIN SODIUM [Concomitant]
  8. ARTIST (CARVEDILOL) [Concomitant]
  9. SEISHOKU (ISOTONIC SODIUM) [Concomitant]
  10. LASIX [Concomitant]
  11. DIGOXIN [Concomitant]
  12. MAGMITT (MAGNESIUM OXIDE) [Concomitant]
  13. DOPAMINE HCL [Concomitant]

REACTIONS (2)
  - HYPOTENSION [None]
  - CARDIAC FAILURE [None]
